FAERS Safety Report 20433359 (Version 5)
Quarter: 2022Q2

REPORT INFORMATION
  Report Type: Spontaneous
  Country: CA (occurrence: CA)
  Receive Date: 20220205
  Receipt Date: 20220531
  Transmission Date: 20220721
  Serious: Yes (Other)
  Sender: FDA-Public Use
  Company Number: CA-CELLTRION INC.-2021CA011172

PATIENT

DRUGS (9)
  1. INFLECTRA [Suspect]
     Active Substance: INFLIXIMAB-DYYB
     Indication: Crohn^s disease
     Dosage: AT 0, 2, 6 WEEK DOSE AND THEN Q 8 WEEKS
     Route: 042
     Dates: start: 20210630
  2. INFLECTRA [Suspect]
     Active Substance: INFLIXIMAB-DYYB
     Dosage: AT 0, 2, 6 WEEK DOSE AND THEN Q 8 WEEKS
     Route: 042
     Dates: start: 20210714
  3. INFLECTRA [Suspect]
     Active Substance: INFLIXIMAB-DYYB
     Dosage: AT 0, 2, 6 WEEK DOSE AND THEN Q 8 WEEKS
     Route: 042
     Dates: start: 20211006
  4. INFLECTRA [Suspect]
     Active Substance: INFLIXIMAB-DYYB
     Dosage: AT 0, 2, 6 WEEK DOSE AND THEN Q 8 WEEKS
     Route: 042
     Dates: start: 20211201
  5. INFLECTRA [Suspect]
     Active Substance: INFLIXIMAB-DYYB
     Dosage: AT 0, 2, 6 WEEK DOSE AND THEN Q 8 WEEKS
     Route: 042
     Dates: start: 20220126
  6. INFLECTRA [Suspect]
     Active Substance: INFLIXIMAB-DYYB
     Dosage: AT 0, 2, 6 WEEK DOSE AND THEN Q 8 WEEKS
     Route: 042
     Dates: start: 20220323
  7. INFLECTRA [Suspect]
     Active Substance: INFLIXIMAB-DYYB
     Dosage: AT 0, 2, 6 WEEK DOSE AND THEN Q 8 WEEKS
     Route: 042
     Dates: start: 20220518
  8. METHOTREXATE [Concomitant]
     Active Substance: METHOTREXATE
     Dosage: 1 DF, DOSAGE NOT AVAILABLE
     Route: 065
  9. PREDNISONE [Concomitant]
     Active Substance: PREDNISONE
     Dosage: UNK

REACTIONS (9)
  - Weight decreased [Unknown]
  - Therapeutic response shortened [Unknown]
  - Off label use [Unknown]
  - Intentional product use issue [Unknown]
  - Off label use [Unknown]
  - Blood pressure fluctuation [Unknown]
  - Decreased appetite [Unknown]
  - Micturition urgency [Unknown]
  - Condition aggravated [Unknown]

NARRATIVE: CASE EVENT DATE: 20210714
